FAERS Safety Report 17818189 (Version 1)
Quarter: 2020Q2

REPORT INFORMATION
  Report Type: Spontaneous
  Country: AU (occurrence: AU)
  Receive Date: 20200522
  Receipt Date: 20200522
  Transmission Date: 20200714
  Serious: Yes (Other)
  Sender: FDA-Public Use
  Company Number: AU-ASTRAZENECA-2020SE65539

PATIENT
  Age: 43 Year
  Sex: Male

DRUGS (15)
  1. MAGNESIUM [Suspect]
     Active Substance: MAGNESIUM
     Route: 065
  2. CLOPINE [Suspect]
     Active Substance: CLOZAPINE
     Dosage: DOSE UP-TITRATION UNKNOWN
     Route: 065
     Dates: start: 201809
  3. CLOPINE [Suspect]
     Active Substance: CLOZAPINE
     Dosage: 650.0MG UNKNOWN
     Route: 065
  4. CLOPINE [Suspect]
     Active Substance: CLOZAPINE
     Dosage: 550.0MG UNKNOWN
     Route: 065
  5. SODIUM VALPROATE [Suspect]
     Active Substance: VALPROATE SODIUM
     Route: 048
  6. LITHIUM. [Suspect]
     Active Substance: LITHIUM
     Dosage: 450.0MG UNKNOWN
     Route: 065
  7. RABEPRAZOLE [Suspect]
     Active Substance: RABEPRAZOLE
     Dosage: 40.0MG UNKNOWN
     Route: 065
  8. CLOPINE [Suspect]
     Active Substance: CLOZAPINE
     Dosage: 700.0MG UNKNOWN
     Route: 065
  9. QUETIAPINE. [Suspect]
     Active Substance: QUETIAPINE
     Dosage: 800.0MG UNKNOWN
     Route: 048
  10. SODIUM VALPROATE [Suspect]
     Active Substance: VALPROATE SODIUM
     Route: 048
  11. QUETIAPINE. [Suspect]
     Active Substance: QUETIAPINE
     Dosage: 900.0MG UNKNOWN
     Route: 048
  12. HYOSCINE BROMIDE (HYOSCINE) [Suspect]
     Active Substance: SCOPOLAMINE
     Route: 065
  13. CLOPINE [Suspect]
     Active Substance: CLOZAPINE
     Dosage: 450.0MG UNKNOWN
     Route: 065
  14. SERTRALINE [Suspect]
     Active Substance: SERTRALINE HYDROCHLORIDE
     Dosage: 100MG MANE
     Route: 065
  15. LITHIUM. [Suspect]
     Active Substance: LITHIUM
     Dosage: 900.0MG UNKNOWN
     Route: 065

REACTIONS (9)
  - Psychotic disorder [Recovering/Resolving]
  - Hallucination [Unknown]
  - Troponin increased [Unknown]
  - Myocarditis [Unknown]
  - C-reactive protein increased [Unknown]
  - Rebound psychosis [Recovering/Resolving]
  - Salivary hypersecretion [Unknown]
  - Body temperature increased [Unknown]
  - Constipation [Unknown]

NARRATIVE: CASE EVENT DATE: 201803
